APPROVED DRUG PRODUCT: LEUPROLIDE ACETATE
Active Ingredient: LEUPROLIDE ACETATE
Strength: 14MG/2.8ML (1MG/0.2ML)
Dosage Form/Route: SOLUTION;SUBCUTANEOUS
Application: A075721 | Product #001
Applicant: GENZYME CORPORATION
Approved: Nov 29, 2001 | RLD: No | RS: No | Type: DISCN